FAERS Safety Report 24041888 (Version 1)
Quarter: 2024Q3

REPORT INFORMATION
  Report Type: Spontaneous
  Country: US (occurrence: US)
  Receive Date: 20240702
  Receipt Date: 20240702
  Transmission Date: 20241016
  Serious: No
  Sender: TEVA
  Company Number: US-TEVA-VS-3212150

PATIENT
  Age: 69 Year
  Sex: Female

DRUGS (1)
  1. COPAXONE [Suspect]
     Active Substance: GLATIRAMER ACETATE
     Indication: Product used for unknown indication
     Dosage: UNKNOWN
     Route: 065

REACTIONS (1)
  - Dysphonia [Unknown]

NARRATIVE: CASE EVENT DATE: 20240620
